FAERS Safety Report 10949045 (Version 1)
Quarter: 2015Q1

REPORT INFORMATION
  Report Type: Spontaneous
  Country: TR (occurrence: None)
  Receive Date: 20150320
  Receipt Date: 20150320
  Transmission Date: 20150721
  Serious: Yes (Hospitalization)
  Sender: FDA-Public Use
  Company Number: NSR_02008_2015

PATIENT
  Age: 33 Year
  Sex: Male

DRUGS (1)
  1. PROPRANOLOL [Suspect]
     Active Substance: PROPRANOLOL\PROPRANOLOL HYDROCHLORIDE
     Indication: PRODUCT USED FOR UNKNOWN INDICATION
     Dosage: 800/0.94 MG/KG (NOT THE PRESCRIBED AMOUNT) ORAL
     Route: 048

REACTIONS (3)
  - Overdose [None]
  - Cardiogenic shock [None]
  - Toxicity to various agents [None]
